FAERS Safety Report 6319981-4 (Version None)
Quarter: 2009Q3

REPORT INFORMATION
  Report Type: 
  Country: None (occurrence: None)
  Receive Date: 20090822
  Receipt Date: 20081022
  Transmission Date: 20100115
  Serious: No
  Sender: FDA-Public Use
  Company Number: US-ABBOTT-08P-163-0483293-00

PATIENT
  Sex: Female

DRUGS (28)
  1. NIASPAN [Suspect]
     Indication: HIGH DENSITY LIPOPROTEIN DECREASED
     Route: 048
     Dates: start: 20081021
  2. NIASPAN [Suspect]
     Indication: BLOOD TRIGLYCERIDES INCREASED
  3. INSULIN [Concomitant]
     Indication: DRUG USE FOR UNKNOWN INDICATION
  4. EPOETIN ALFA [Concomitant]
     Indication: DRUG USE FOR UNKNOWN INDICATION
  5. ASPIRIN [Concomitant]
     Indication: DRUG USE FOR UNKNOWN INDICATION
  6. VERAPAMIL [Concomitant]
     Indication: CARDIAC DISORDER
  7. IRBESARTAN [Concomitant]
     Indication: CARDIAC DISORDER
  8. LOSARTAN POTASSIUM [Concomitant]
     Indication: GASTRIC DISORDER
  9. DULOXETINE HYDROCHLORIDE [Concomitant]
     Indication: DRUG USE FOR UNKNOWN INDICATION
  10. MISOPROSTOL [Concomitant]
     Indication: GASTRIC DISORDER
  11. FERROUS SULFATE TAB [Concomitant]
     Indication: DRUG USE FOR UNKNOWN INDICATION
  12. GABAPENTIN [Concomitant]
     Indication: PAIN
  13. DIGOXIN [Concomitant]
     Indication: CARDIAC DISORDER
  14. FUROSEMIDE [Concomitant]
     Indication: DRUG USE FOR UNKNOWN INDICATION
  15. CLOPIDOGREL [Concomitant]
     Indication: CARDIAC DISORDER
  16. PANTOPRAZOLE SODIUM [Concomitant]
     Indication: GASTROOESOPHAGEAL REFLUX DISEASE
  17. PRAVASTATIN SODIUM [Concomitant]
     Indication: BLOOD CHOLESTEROL
  18. METOCLOPRAMIDE [Concomitant]
     Indication: GASTRIC DISORDER
  19. VIGRAN [Concomitant]
     Indication: DRUG USE FOR UNKNOWN INDICATION
  20. VACCINIUM MYRTILLUS [Concomitant]
     Indication: EYE DISORDER
  21. CALMAG PLUS D [Concomitant]
     Indication: DRUG USE FOR UNKNOWN INDICATION
  22. DOCUSATE SODIUM [Concomitant]
     Indication: CONSTIPATION PROPHYLAXIS
  23. LESOPIN OMEGA 3 [Concomitant]
     Indication: DRUG USE FOR UNKNOWN INDICATION
  24. MILK THISTLE [Concomitant]
     Indication: DRUG USE FOR UNKNOWN INDICATION
  25. B100 [Concomitant]
     Indication: DRUG USE FOR UNKNOWN INDICATION
  26. NEURO PS [Concomitant]
     Indication: MEMORY IMPAIRMENT
  27. C500 [Concomitant]
     Indication: DRUG USE FOR UNKNOWN INDICATION
  28. GTF CHROMIUM [Concomitant]
     Indication: DRUG USE FOR UNKNOWN INDICATION

REACTIONS (2)
  - ABDOMINAL PAIN [None]
  - DIARRHOEA [None]
